FAERS Safety Report 10951067 (Version 1)
Quarter: 2015Q1

REPORT INFORMATION
  Report Type: Spontaneous
  Country: US (occurrence: US)
  Receive Date: 20150324
  Receipt Date: 20150324
  Transmission Date: 20150721
  Serious: No
  Sender: FDA-Public Use
  Company Number: US-009507513-1503USA007500

PATIENT
  Age: 65 Year
  Sex: Male

DRUGS (5)
  1. DIAZEPAM. [Concomitant]
     Active Substance: DIAZEPAM
  2. BELSOMRA [Suspect]
     Active Substance: SUVOREXANT
     Dosage: THE PATIENT CUT PILLS IN HALF
     Route: 048
     Dates: start: 201503
  3. GABAPENTIN. [Concomitant]
     Active Substance: GABAPENTIN
  4. BELSOMRA [Suspect]
     Active Substance: SUVOREXANT
     Indication: INSOMNIA
     Dosage: 15 MG, QPM
     Route: 048
     Dates: start: 20150227
  5. PERCOCET [Concomitant]
     Active Substance: ACETAMINOPHEN\OXYCODONE HYDROCHLORIDE

REACTIONS (2)
  - Hypersomnia [Not Recovered/Not Resolved]
  - Wrong technique in drug usage process [Unknown]

NARRATIVE: CASE EVENT DATE: 201502
